FAERS Safety Report 16217291 (Version 1)
Quarter: 2019Q2

REPORT INFORMATION
  Report Type: Spontaneous
  Country: CN (occurrence: CN)
  Receive Date: 20190419
  Receipt Date: 20190419
  Transmission Date: 20190711
  Serious: Yes (Hospitalization)
  Sender: FDA-Public Use
  Company Number: CN-STRIDES ARCOLAB LIMITED-2019SP003253

PATIENT
  Age: 30 Year
  Sex: Female

DRUGS (5)
  1. VANCOMYCIN [Suspect]
     Active Substance: VANCOMYCIN
     Indication: INFECTION PROPHYLAXIS
     Dosage: 1G OVER TWO HOURS (AT 11:00) AS A LOADING DOSE ON DAY THREE
     Route: 042
  2. VANCOMYCIN [Suspect]
     Active Substance: VANCOMYCIN
     Dosage: 0.5G OVER ONE HOUR ONCE EVERY EIGHT HOURS AS A MAINTENANCE DOSE ON DAY THREE
     Route: 042
  3. VANCOMYCIN [Suspect]
     Active Substance: VANCOMYCIN
     Dosage: UNK (ADJUSTED ACCORDING TO THE BLOOD CONCENTRATION LEVEL)
     Route: 042
  4. VANCOMYCIN [Suspect]
     Active Substance: VANCOMYCIN
     Dosage: INCREASED TO 1 G/DOSING OVER TWO HOURS ONCE EVERY 12H ON DAY SEVEN
     Route: 042
  5. VANCOMYCIN [Suspect]
     Active Substance: VANCOMYCIN
     Dosage: 1 G/DOSING ONCE EVERY 12H WAS CONTINUED TILL DAY 19 OF ICU ADMISSION
     Route: 042

REACTIONS (1)
  - Coagulopathy [Unknown]
